FAERS Safety Report 4305261-5 (Version None)
Quarter: 2004Q1

REPORT INFORMATION
  Report Type: 
  Country: None (occurrence: None)
  Receive Date: 20040226
  Receipt Date: 20040130
  Transmission Date: 20041129
  Serious: No
  Sender: FDA-Public Use
  Company Number: US-BRISTOL-MYERS SQUIBB COMPANY-12493276

PATIENT
  Age: 56 Year
  Sex: Male

DRUGS (4)
  1. DEFINITY [Suspect]
     Dosage: MIX WITH 8 CC OF SALINE VIA A DILUTED BOLUS
  2. TRICOR [Concomitant]
  3. DILTIAZEM CD [Concomitant]
  4. ASPIRIN [Concomitant]

REACTIONS (3)
  - BACK PAIN [None]
  - COUGH [None]
  - SNEEZING [None]
